FAERS Safety Report 5654862-0 (Version None)
Quarter: 2008Q1

REPORT INFORMATION
  Report Type: 
  Country: None (occurrence: None)
  Receive Date: 20080307
  Receipt Date: 20070815
  Transmission Date: 20080703
  Serious: No
  Sender: FDA-Public Use
  Company Number: A0670679A

PATIENT
  Age: 68 Year
  Sex: Female

DRUGS (10)
  1. REQUIP [Suspect]
     Indication: RESTLESS LEGS SYNDROME
     Dosage: .25MG VARIABLE DOSE
     Route: 048
     Dates: start: 20050101
  2. KLONOPIN [Concomitant]
  3. PLAQUENIL [Concomitant]
  4. ASPIRIN [Concomitant]
  5. INNOPRAN [Concomitant]
  6. PAXIL CR [Concomitant]
  7. DARVON [Concomitant]
  8. AMBIEN [Concomitant]
  9. SINGULAIR [Concomitant]
  10. CENTRUM [Concomitant]

REACTIONS (1)
  - THERAPEUTIC RESPONSE UNEXPECTED [None]
